FAERS Safety Report 5126823-1 (Version None)
Quarter: 2006Q4

REPORT INFORMATION
  Report Type: 
  Country: None (occurrence: None)
  Receive Date: 20061010
  Receipt Date: 20060928
  Transmission Date: 20070319
  Serious: Yes (Hospitalization, Other)
  Sender: FDA-Public Use
  Company Number: 2006090060

PATIENT
  Age: 64 Year
  Sex: Male
  Weight: 82.5547 kg

DRUGS (4)
  1. LIPITOR [Suspect]
     Indication: ANGINA PECTORIS
     Dosage: 40 MG (40 MG, 1 IN 1 D)
     Dates: start: 20030101, end: 20060510
  2. PLAVIX [Concomitant]
  3. ATENOLOL [Concomitant]
  4. ALTACE [Concomitant]

REACTIONS (17)
  - ALOPECIA [None]
  - AMNESIA [None]
  - ANGINA UNSTABLE [None]
  - ARTERIAL DISORDER [None]
  - BLOOD URINE PRESENT [None]
  - CHEST DISCOMFORT [None]
  - CORONARY ARTERY DISEASE [None]
  - EAR PAIN [None]
  - HYPOAESTHESIA [None]
  - HYPOTONIA [None]
  - MUSCLE ATROPHY [None]
  - MYALGIA [None]
  - NECK PAIN [None]
  - PAIN IN JAW [None]
  - PARALYSIS [None]
  - SENSORY DISTURBANCE [None]
  - VEIN DISORDER [None]
